FAERS Safety Report 8770954 (Version 2)
Quarter: 2012Q4

REPORT INFORMATION
  Report Type: 
  Country: US (occurrence: US)
  Receive Date: 20120906
  Receipt Date: 20121003
  Transmission Date: 20130627
  Serious: Yes (Other)
  Sender: FDA-Public Use
  Company Number: US-PFIZER INC-2012215211

PATIENT
  Age: 44 Year
  Sex: Female
  Weight: 56.69 kg

DRUGS (3)
  1. LYRICA [Suspect]
     Indication: FIBROMYALGIA
     Dosage: 75 mg, 4x/day
     Route: 048
     Dates: end: 20120827
  2. FENTANYL [Concomitant]
     Indication: PAIN
     Dosage: UNK
  3. OXYCODONE [Concomitant]
     Dosage: UNK, 2x/day

REACTIONS (4)
  - Withdrawal syndrome [Recovering/Resolving]
  - Pain [Recovering/Resolving]
  - Influenza like illness [Recovering/Resolving]
  - Weight decreased [Unknown]
